FAERS Safety Report 7419684-9 (Version None)
Quarter: 2011Q2

REPORT INFORMATION
  Report Type: 
  Country: None (occurrence: None)
  Receive Date: 20110418
  Receipt Date: 20110406
  Transmission Date: 20111010
  Serious: Yes (Death, Other)
  Sender: FDA-Public Use
  Company Number: JP-JNJFOC-20110403452

PATIENT
  Age: 46 Year
  Sex: Female

DRUGS (5)
  1. SEDATIVES [Concomitant]
     Route: 065
  2. ANTIDEPRESSANTS [Concomitant]
     Route: 065
  3. DUROTEP MT [Suspect]
     Indication: PAIN IN EXTREMITY
     Dosage: APPLIED 7 50 UG/HR PATCHES
     Route: 062
  4. DUROTEP MT [Suspect]
     Route: 062
  5. DUROTEP MT [Suspect]
     Route: 062

REACTIONS (12)
  - PYREXIA [None]
  - PRODUCT QUALITY ISSUE [None]
  - DEATH [None]
  - COLITIS [None]
  - DRUG PRESCRIBING ERROR [None]
  - INAPPROPRIATE SCHEDULE OF DRUG ADMINISTRATION [None]
  - SUICIDE ATTEMPT [None]
  - INADEQUATE ANALGESIA [None]
  - HYPERHIDROSIS [None]
  - OVERDOSE [None]
  - RIB FRACTURE [None]
  - FALL [None]
